FAERS Safety Report 4287176-4 (Version None)
Quarter: 2004Q1

REPORT INFORMATION
  Report Type: 
  Country: None (occurrence: None)
  Receive Date: 20040204
  Receipt Date: 20040120
  Transmission Date: 20041129
  Serious: Yes (Other)
  Sender: FDA-Public Use
  Company Number: A-US2004-04249

PATIENT
  Age: 80 Year
  Sex: Female

DRUGS (7)
  1. TRACLEER [Suspect]
     Indication: PULMONARY HYPERTENSION
     Dosage: 125 MG, BID, ORAL; SEE IMAGE
     Route: 048
     Dates: start: 20030301, end: 20030401
  2. TRACLEER [Suspect]
     Indication: PULMONARY HYPERTENSION
     Dosage: 125 MG, BID, ORAL; SEE IMAGE
     Route: 048
     Dates: start: 20030401
  3. COUMADIN [Concomitant]
  4. TRENTAL [Concomitant]
  5. HYDROCHLOROTHIAZIDE [Concomitant]
  6. CALCIUM (CALCIUM) [Concomitant]
  7. SODIUM CHLORIDE [Concomitant]

REACTIONS (2)
  - EYE PAIN [None]
  - IRITIS [None]
